FAERS Safety Report 8733470 (Version 2)
Quarter: 2012Q4

REPORT INFORMATION
  Report Type: 
  Country: US (occurrence: US)
  Receive Date: 20120821
  Receipt Date: 20120904
  Transmission Date: 20130627
  Serious: Yes (Other)
  Sender: FDA-Public Use
  Company Number: US-JNJFOC-20120807112

PATIENT
  Age: 56 None
  Sex: Male
  Weight: 92.99 kg

DRUGS (2)
  1. NUCYNTA IR [Suspect]
     Indication: MUSCULOSKELETAL PAIN
     Dosage: twice day
     Route: 048
     Dates: start: 201208
  2. NUCYNTA IR [Suspect]
     Indication: BACK PAIN
     Dosage: twice day
     Route: 048
     Dates: start: 201208

REACTIONS (4)
  - Delirium tremens [Not Recovered/Not Resolved]
  - Underdose [Not Recovered/Not Resolved]
  - Drug ineffective [Not Recovered/Not Resolved]
  - Feeling jittery [Not Recovered/Not Resolved]
